FAERS Safety Report 8590131-7 (Version None)
Quarter: 2012Q3

REPORT INFORMATION
  Report Type: 
  Country: None (occurrence: None)
  Receive Date: 20120813
  Receipt Date: 20120809
  Transmission Date: 20120928
  Serious: Yes (Life-Threatening, Hospitalization)
  Sender: FDA-Public Use
  Company Number: US-B.I. PHARMACEUTICALS,INC./RIDGEFIELD-2011-BP-17635BP

PATIENT
  Age: 85 Year
  Sex: Female

DRUGS (6)
  1. DOCUSATE SODIUM [Concomitant]
     Dosage: 200 MG
  2. SIMVASTATIN [Concomitant]
     Dosage: 20 MG
  3. METFORMIN HYDROCHLORIDE [Concomitant]
     Dosage: 500 MG
  4. CORDESION [Concomitant]
     Dosage: 250 MG
  5. LEVOTHYROXINE SODIUM [Concomitant]
     Dosage: 0.75 MG
  6. PRADAXA [Suspect]
     Indication: ATRIAL FIBRILLATION
     Dosage: 300 MG
     Route: 048
     Dates: end: 20110627

REACTIONS (2)
  - GASTROINTESTINAL HAEMORRHAGE [None]
  - HAEMATOCHEZIA [None]
